FAERS Safety Report 14398695 (Version 1)
Quarter: 2018Q1

REPORT INFORMATION
  Report Type: Spontaneous
  Country: IL (occurrence: IL)
  Receive Date: 20180117
  Receipt Date: 20180117
  Transmission Date: 20180509
  Serious: Yes (Hospitalization, Other)
  Sender: FDA-Public Use
  Company Number: IL-ROCHE-2051689

PATIENT
  Age: 60 Year
  Sex: Female

DRUGS (6)
  1. ABSTRAL [Concomitant]
     Active Substance: FENTANYL CITRATE
     Route: 060
  2. CARBOPLATIN. [Suspect]
     Active Substance: CARBOPLATIN
     Indication: CERVIX CANCER METASTATIC
     Dosage: AUC 6
     Route: 065
  3. LAEVOLAC [Concomitant]
     Active Substance: LACTULOSE
     Route: 048
  4. RELVAR ELLIPTA [Concomitant]
     Active Substance: FLUTICASONE FUROATE\VILANTEROL TRIFENATATE
     Route: 065
  5. AVASTIN [Suspect]
     Active Substance: BEVACIZUMAB
     Indication: CERVIX CANCER METASTATIC
     Route: 065
  6. TAXOTERE [Suspect]
     Active Substance: DOCETAXEL
     Indication: CERVIX CANCER METASTATIC
     Route: 065

REACTIONS (8)
  - Urinary tract infection [Unknown]
  - Sarcoidosis [Unknown]
  - Adrenal neoplasm [Unknown]
  - Abdominal pain [Unknown]
  - Colitis [Unknown]
  - Pancytopenia [Recovered/Resolved]
  - Neuropathy peripheral [Unknown]
  - Hypertension [Unknown]

NARRATIVE: CASE EVENT DATE: 201705
